FAERS Safety Report 4622521-9 (Version None)
Quarter: 2005Q1

REPORT INFORMATION
  Report Type: 
  Country: None (occurrence: None)
  Receive Date: 20050330
  Receipt Date: 20050218
  Transmission Date: 20050727
  Serious: Yes (Other)
  Sender: FDA-Public Use
  Company Number: FR-ROCHE-399610

PATIENT
  Age: 35 Year
  Sex: Male

DRUGS (3)
  1. PEGASYS [Suspect]
     Indication: HEPATITIS C
     Dosage: FORM: INJECTABLE SOLUTION
     Route: 058
  2. COPEGUS [Suspect]
     Indication: HEPATITIS C
     Route: 048
  3. MANTADIX [Suspect]
     Indication: HEPATITIS C
     Route: 065

REACTIONS (1)
  - PSYCHOTIC DISORDER [None]
